FAERS Safety Report 9443197 (Version 1)
Quarter: 2013Q3

REPORT INFORMATION
  Report Type: Spontaneous
  Country: GB (occurrence: GB)
  Receive Date: 20130806
  Receipt Date: 20130806
  Transmission Date: 20140515
  Serious: Yes (Disabling, Other)
  Sender: FDA-Public Use
  Company Number: GB-WATSON-2013-13682

PATIENT
  Sex: Female

DRUGS (1)
  1. SODIUM VALPROATE (UNKNOWN) [Suspect]
     Indication: TEMPORAL LOBE EPILEPSY
     Dosage: 1800 MG PER DAY 2 TIMES DAILY
     Route: 064
     Dates: start: 19960218, end: 19970201

REACTIONS (6)
  - Intelligence test abnormal [Unknown]
  - Pupils unequal [Unknown]
  - Speech disorder developmental [Unknown]
  - Social avoidant behaviour [Unknown]
  - Developmental delay [Unknown]
  - Social problem [Unknown]
